FAERS Safety Report 13527969 (Version 2)
Quarter: 2017Q2

REPORT INFORMATION
  Report Type: Spontaneous
  Country: US (occurrence: US)
  Receive Date: 20170509
  Receipt Date: 20170623
  Transmission Date: 20170830
  Serious: No
  Sender: FDA-Public Use
  Company Number: US-PFIZER INC-2017200195

PATIENT
  Sex: Female

DRUGS (1)
  1. XELJANZ [Suspect]
     Active Substance: TOFACITINIB CITRATE
     Dosage: 5 MG, DAILY

REACTIONS (12)
  - Abnormal loss of weight [Unknown]
  - Gait disturbance [Unknown]
  - Dry skin [Unknown]
  - Joint swelling [Unknown]
  - Joint effusion [Unknown]
  - Serum ferritin increased [Unknown]
  - Balance disorder [Unknown]
  - Contusion [Unknown]
  - Joint range of motion decreased [Unknown]
  - Effusion [Unknown]
  - Joint crepitation [Unknown]
  - Joint dislocation [Unknown]
